FAERS Safety Report 5422490-8 (Version None)
Quarter: 2007Q3

REPORT INFORMATION
  Report Type: 
  Country: None (occurrence: None)
  Receive Date: 20070822
  Receipt Date: 20070820
  Transmission Date: 20080115
  Serious: Yes (Other)
  Sender: FDA-Public Use
  Company Number: A0660699A

PATIENT
  Age: 36 Year
  Sex: Female
  Weight: 89.1 kg

DRUGS (3)
  1. ALLI [Suspect]
     Indication: WEIGHT LOSS DIET
     Dosage: 1CAP THREE TIMES PER DAY
     Route: 048
     Dates: start: 20070616, end: 20070628
  2. ORTHO-NOVUM [Concomitant]
  3. CARDIZEM [Concomitant]

REACTIONS (9)
  - ABDOMINAL DISCOMFORT [None]
  - ABDOMINAL PAIN [None]
  - DIARRHOEA [None]
  - FREQUENT BOWEL MOVEMENTS [None]
  - HAEMATURIA [None]
  - HAEMORRHAGE [None]
  - HAEMORRHOIDS [None]
  - OCCULT BLOOD POSITIVE [None]
  - RECTAL HAEMORRHAGE [None]
